FAERS Safety Report 5196897-0 (Version None)
Quarter: 2007Q1

REPORT INFORMATION
  Report Type: 
  Country: None (occurrence: None)
  Receive Date: 20070103
  Receipt Date: 20070102
  Transmission Date: 20070707
  Serious: Yes (Other)
  Sender: FDA-Public Use
  Company Number: US-BAYER-200610836BWH

PATIENT
  Age: 82 Year
  Sex: Female
  Weight: 57 kg

DRUGS (4)
  1. NEXAVAR [Suspect]
     Indication: RENAL CELL CARCINOMA STAGE UNSPECIFIED
     Dosage: TOTAL DAILY DOSE: 800 MG  UNIT DOSE: 200 MG
     Route: 048
     Dates: start: 20060202
  2. NEXAVAR [Suspect]
     Dosage: TOTAL DAILY DOSE: 400 MG  UNIT DOSE: 200 MG
     Route: 048
  3. DIGITEK [Concomitant]
     Route: 048
  4. VITAMINS [Concomitant]

REACTIONS (9)
  - BACK PAIN [None]
  - BURNING SENSATION [None]
  - DECREASED APPETITE [None]
  - ERYTHEMA [None]
  - METASTATIC RENAL CELL CARCINOMA [None]
  - OEDEMA PERIPHERAL [None]
  - PAIN IN EXTREMITY [None]
  - PRURITUS [None]
  - RASH PRURITIC [None]
